FAERS Safety Report 9780228 (Version 2)
Quarter: 2013Q4

REPORT INFORMATION
  Report Type: Spontaneous
  Country: US (occurrence: US)
  Receive Date: 20131223
  Receipt Date: 20131223
  Transmission Date: 20140711
  Serious: Yes (Other)
  Sender: FDA-Public Use
  Company Number: CHPA2013US018526

PATIENT
  Sex: Female

DRUGS (2)
  1. TRANSDERM SCOP [Suspect]
     Indication: POST PROCEDURAL COMPLICATION
  2. TRANSDERM SCOP [Suspect]
     Indication: OFF LABEL USE

REACTIONS (1)
  - Withdrawal syndrome [Unknown]
